FAERS Safety Report 7579408-1 (Version None)
Quarter: 2011Q2

REPORT INFORMATION
  Report Type: 
  Country: None (occurrence: None)
  Receive Date: 20110629
  Receipt Date: 20110614
  Transmission Date: 20111010
  Serious: Yes (Hospitalization)
  Sender: FDA-Public Use
  Company Number: US-BIOGENIDEC-2011BI016012

PATIENT
  Age: 58 Year
  Sex: Female

DRUGS (2)
  1. BREATHING TREATMENTS (NOS) [Concomitant]
     Indication: ASTHMA
  2. TYSABRI [Suspect]
     Indication: MULTIPLE SCLEROSIS
     Route: 042
     Dates: start: 20070629

REACTIONS (3)
  - PNEUMONIA [None]
  - BRONCHITIS [None]
  - INCONTINENCE [None]
